FAERS Safety Report 7900707 (Version 2)
Quarter: 2013Q3

REPORT INFORMATION
  Report Type: Report from Study
  Country: UG (occurrence: UG)
  Receive Date: 20110415
  Receipt Date: 20130906
  Transmission Date: 20140515
  Serious: Yes (Other)
  Sender: FDA-Public Use
  Company Number: UG-ABBOTT-11P-165-0703696-00

PATIENT
  Age: 32 Year
  Sex: Female

DRUGS (7)
  1. ALUVIA TABLETS [Suspect]
     Indication: HIV INFECTION
     Route: 048
     Dates: start: 20110110, end: 20110207
  2. ARTEMETHER [Concomitant]
     Indication: MALARIA
     Dates: start: 20110207, end: 20110209
  3. SEPTRIN [Concomitant]
     Indication: PRODUCT USED FOR UNKNOWN INDICATION
  4. RALTEGRAVIR [Concomitant]
     Indication: HIV INFECTION
     Dates: start: 20110110, end: 20110207
  5. AMIKACIN [Concomitant]
     Indication: PRODUCT USED FOR UNKNOWN INDICATION
     Dates: start: 20110313, end: 20110315
  6. AMOXYCILLIN [Concomitant]
     Indication: PRODUCT USED FOR UNKNOWN INDICATION
     Dates: start: 20110307, end: 20110317
  7. SALBUTAMOL [Concomitant]
     Indication: PRODUCT USED FOR UNKNOWN INDICATION
     Dates: start: 20110307, end: 20110312

REACTIONS (7)
  - Bronchopneumonia [Unknown]
  - Hypersensitivity [Recovered/Resolved]
  - Hypersensitivity [Recovered/Resolved]
  - Rash papular [Unknown]
  - Rash generalised [Unknown]
  - Rash pruritic [Unknown]
  - Jaundice [Unknown]
